FAERS Safety Report 8262818-7 (Version None)
Quarter: 2012Q2

REPORT INFORMATION
  Report Type: 
  Country: None (occurrence: None)
  Receive Date: 20120405
  Receipt Date: 20120328
  Transmission Date: 20120825
  Serious: Yes (Hospitalization, Other)
  Sender: FDA-Public Use
  Company Number: CH-JNJFOC-20120112847

PATIENT
  Sex: Female
  Weight: 50 kg

DRUGS (4)
  1. XARELTO [Suspect]
     Indication: DISSEMINATED INTRAVASCULAR COAGULATION
     Route: 048
     Dates: start: 20110910, end: 20120118
  2. XARELTO [Suspect]
     Indication: HAEMANGIOMA-THROMBOCYTOPENIA SYNDROME
     Route: 048
     Dates: start: 20110910, end: 20120118
  3. XARELTO [Suspect]
     Indication: BUDD-CHIARI SYNDROME
     Route: 048
     Dates: start: 20110910, end: 20120118
  4. XARELTO [Suspect]
     Indication: THROMBOSIS PROPHYLAXIS
     Route: 048
     Dates: start: 20110910, end: 20120118

REACTIONS (2)
  - ISCHAEMIC STROKE [None]
  - TRANSIENT ISCHAEMIC ATTACK [None]
